FAERS Safety Report 9726139 (Version 1)
Quarter: 2013Q4

REPORT INFORMATION
  Report Type: Spontaneous
  Country: US (occurrence: None)
  Receive Date: 20131202
  Receipt Date: 20131202
  Transmission Date: 20140711
  Serious: Yes (Hospitalization)
  Sender: FDA-Public Use
  Company Number: None

PATIENT
  Age: 67 Year
  Sex: Male
  Weight: 95.5 kg

DRUGS (4)
  1. METHOTREXATE [Suspect]
     Indication: STOMATITIS
     Dosage: 7.5 MG, QWEEK, PO
     Route: 048
     Dates: start: 20101006, end: 20131001
  2. METHOTREXATE [Suspect]
     Indication: PANCYTOPENIA
     Dosage: 7.5 MG, QWEEK, PO
     Route: 048
     Dates: start: 20101006, end: 20131001
  3. METHOTREXATE [Suspect]
     Indication: RENAL IMPAIRMENT
     Dosage: 7.5 MG, QWEEK, PO
     Route: 048
     Dates: start: 20101006, end: 20131001
  4. ADALIMUMAB [Suspect]
     Indication: INFECTION
     Dosage: 0.8ML OTHER SQ
     Route: 058
     Dates: start: 20100903, end: 20131001

REACTIONS (12)
  - Odynophagia [None]
  - Oral herpes [None]
  - Pyrexia [None]
  - Decreased appetite [None]
  - Asthenia [None]
  - Stomatitis [None]
  - Herpes simplex meningoencephalitis [None]
  - Mental status changes [None]
  - Mucosal inflammation [None]
  - Pancytopenia [None]
  - Renal impairment [None]
  - Toxicity to various agents [None]
